FAERS Safety Report 22033547 (Version 2)
Quarter: 2023Q1

REPORT INFORMATION
  Report Type: Spontaneous
  Country: ES (occurrence: ES)
  Receive Date: 20230224
  Receipt Date: 20230306
  Transmission Date: 20230417
  Serious: Yes (Other)
  Sender: FDA-Public Use
  Company Number: ES-LETIPHARMA-2023012

PATIENT
  Age: 52 Year

DRUGS (4)
  1. CETIRIZINE [Suspect]
     Active Substance: CETIRIZINE HYDROCHLORIDE
     Indication: Rhinitis allergic
     Dosage: UNK (10 M/24 H S/PINDICACION: RINITIS ALERGICA/ ALLERGIC RHINITIS)
     Route: 048
  2. SYMBICORT [Suspect]
     Active Substance: BUDESONIDE\FORMOTEROL FUMARATE DIHYDRATE
     Indication: Asthma
     Dosage: UNK (160/4.5 MCG SI PRECISA// 160/4.5 MCG IF NEEDEDINDICACION: ASMA INTERMITENTE / INDICATION: INTER
     Route: 045
  3. ALLERGENIC EXTRACTS [Suspect]
     Active Substance: ALLERGENIC EXTRACTS
     Indication: Conjunctivitis
     Dosage: UNK (ETAPA DE TRATAMIENTO: INICIO; PAUTA: CLUSTER;  INDICACION: RINOCONJUNTIVITIS PERSISTENTE MODERA
     Route: 058
     Dates: start: 20230130
  4. NASONEX [Suspect]
     Active Substance: MOMETASONE FUROATE
     Indication: Rhinitis allergic
     Dosage: UNK (INDICATION: RINITIS ALERGICA / ALLERGIC RHINITIS)
     Route: 045

REACTIONS (3)
  - Hypersensitivity [Recovered/Resolved]
  - Anaphylactic reaction [Recovered/Resolved]
  - Off label use [Recovered/Resolved]

NARRATIVE: CASE EVENT DATE: 20230130
